FAERS Safety Report 7726876-8 (Version None)
Quarter: 2011Q3

REPORT INFORMATION
  Report Type: 
  Country: None (occurrence: None)
  Receive Date: 20110902
  Receipt Date: 20110831
  Transmission Date: 20111222
  Serious: Yes (Hospitalization, Other)
  Sender: FDA-Public Use
  Company Number: US-MERCK-1103USA03944

PATIENT
  Age: 59 Year
  Sex: Female
  Weight: 48 kg

DRUGS (9)
  1. IBUPROFEN [Concomitant]
     Route: 065
     Dates: start: 20050501
  2. FOSAMAX [Suspect]
     Indication: OSTEOPOROSIS
     Route: 048
     Dates: start: 19950101, end: 20070101
  3. FOSAMAX [Suspect]
     Indication: OSTEOPOROSIS PROPHYLAXIS
     Route: 048
     Dates: start: 19950101, end: 20070101
  4. BONIVA [Suspect]
     Indication: OSTEOPOROSIS PROPHYLAXIS
     Route: 065
     Dates: start: 20070101, end: 20100101
  5. TYLENOL-500 [Concomitant]
     Route: 065
     Dates: start: 20050501
  6. CALCIUM (UNSPECIFIED) [Concomitant]
     Route: 065
  7. BONIVA [Suspect]
     Indication: OSTEOPOROSIS
     Route: 065
     Dates: start: 20070101, end: 20100101
  8. CENTRUM SILVER [Concomitant]
     Route: 065
  9. MIACALCIN [Concomitant]
     Route: 065

REACTIONS (53)
  - TOOTH DISORDER [None]
  - DYSPEPSIA [None]
  - FIBROCYSTIC BREAST DISEASE [None]
  - NOCTURIA [None]
  - BLOOD TRIGLYCERIDES ABNORMAL [None]
  - SKIN LESION [None]
  - SKIN DISORDER [None]
  - MUSCULOSKELETAL PAIN [None]
  - RESTLESS LEGS SYNDROME [None]
  - FEMORAL NECK FRACTURE [None]
  - GASTROOESOPHAGEAL REFLUX DISEASE [None]
  - HYPERTRIGLYCERIDAEMIA [None]
  - SPONDYLOLISTHESIS [None]
  - BREAST ENLARGEMENT [None]
  - INTERVERTEBRAL DISC DEGENERATION [None]
  - ARTHRALGIA [None]
  - FOOT DEFORMITY [None]
  - BURSITIS [None]
  - LOW TURNOVER OSTEOPATHY [None]
  - INTERVERTEBRAL DISC DISORDER [None]
  - DRUG INTOLERANCE [None]
  - ANXIETY [None]
  - DYSPHONIA [None]
  - OSTEOARTHRITIS [None]
  - STRESS [None]
  - SCIATICA [None]
  - FEMUR FRACTURE [None]
  - MUSCLE SPASMS [None]
  - THYROID DISORDER [None]
  - VIRAL UPPER RESPIRATORY TRACT INFECTION [None]
  - VERTEBRAL FORAMINAL STENOSIS [None]
  - BACK PAIN [None]
  - ELECTROCARDIOGRAM ABNORMAL [None]
  - INTERVERTEBRAL DISC PROTRUSION [None]
  - HYPERCHOLESTEROLAEMIA [None]
  - RENAL CYST [None]
  - PLANTAR FASCIITIS [None]
  - LUMBAR SPINAL STENOSIS [None]
  - VULVOVAGINAL DRYNESS [None]
  - SPINAL COLUMN STENOSIS [None]
  - GASTROINTESTINAL DISORDER [None]
  - DIARRHOEA [None]
  - SKIN HYPERPIGMENTATION [None]
  - OVARIAN CYST [None]
  - BREAST PAIN [None]
  - LUMBAR RADICULOPATHY [None]
  - LONG THORACIC NERVE PALSY [None]
  - HAEMATOCRIT DECREASED [None]
  - DEAFNESS [None]
  - MITRAL VALVE PROLAPSE [None]
  - WEIGHT INCREASED [None]
  - VISION BLURRED [None]
  - DENTAL CARIES [None]
